FAERS Safety Report 18459376 (Version 6)
Quarter: 2021Q4

REPORT INFORMATION
  Report Type: Report from Study
  Country: US (occurrence: US)
  Receive Date: 20201103
  Receipt Date: 20211204
  Transmission Date: 20220303
  Serious: Yes (Other)
  Sender: FDA-Public Use
  Company Number: US-NOVARTISPH-NVSC2020US295054

PATIENT
  Sex: Female

DRUGS (2)
  1. COSENTYX [Suspect]
     Active Substance: SECUKINUMAB
     Indication: Psoriasis
     Dosage: 300 MG, QMO
     Route: 058
     Dates: start: 20201008
  2. COSENTYX [Suspect]
     Active Substance: SECUKINUMAB
     Dosage: 150 MG(EVERY 2 WEEEKS)
     Route: 058

REACTIONS (13)
  - Haematochezia [Recovering/Resolving]
  - Pharyngeal swelling [Unknown]
  - Skin ulcer [Unknown]
  - Seasonal allergy [Unknown]
  - Headache [Unknown]
  - Blister [Unknown]
  - Asthenia [Recovering/Resolving]
  - Abdominal discomfort [Recovering/Resolving]
  - Somnolence [Recovering/Resolving]
  - Wrong technique in product usage process [Recovering/Resolving]
  - Psoriasis [Unknown]
  - Urticaria [Unknown]
  - Fatigue [Unknown]
